FAERS Safety Report 6423850-9 (Version None)
Quarter: 2009Q4

REPORT INFORMATION
  Report Type: 
  Country: None (occurrence: None)
  Receive Date: 20091102
  Receipt Date: 20091023
  Transmission Date: 20100525
  Serious: Yes (Hospitalization)
  Sender: FDA-Public Use
  Company Number: US-KINGPHARMUSA00001-K200901310

PATIENT
  Age: 80 Year
  Sex: Male

DRUGS (10)
  1. ALTACE [Suspect]
     Dosage: 2.5 MG, QD
     Route: 048
     Dates: start: 20010101, end: 20090924
  2. DIGOXIN [Suspect]
     Indication: CONGESTIVE CARDIOMYOPATHY
     Dosage: 0.25 MG, QD
     Route: 048
     Dates: start: 20010101, end: 20090924
  3. PARAPRESS [Suspect]
     Dosage: 16 MG, QD
     Route: 048
     Dates: start: 20010101, end: 20090924
  4. ROCALTROL [Suspect]
     Dosage: 0.25 MG, QD
     Route: 048
  5. PANTOPRAZOLE SODIUM [Concomitant]
     Dosage: 20 MG, UNK
     Route: 048
  6. LIPOCIDEN [Concomitant]
     Dosage: 10 MG, UNK
     Route: 048
  7. SINTROM [Concomitant]
     Route: 048
  8. UROLOSIN [Concomitant]
     Dosage: 0.4 MG, UNK
     Route: 048
  9. ZYLORIC [Concomitant]
     Dosage: 150 MG, UNK
     Route: 048
  10. SEGURIL [Concomitant]
     Dosage: 40 MG, UNK
     Route: 048

REACTIONS (2)
  - BRADYCARDIA [None]
  - HYPERKALAEMIA [None]
